FAERS Safety Report 9638265 (Version 2)
Quarter: 2013Q4

REPORT INFORMATION
  Report Type: Spontaneous
  Country: US (occurrence: US)
  Receive Date: 20131022
  Receipt Date: 20131210
  Transmission Date: 20140711
  Serious: Yes (Other)
  Sender: FDA-Public Use
  Company Number: US-PFIZER INC-2013301941

PATIENT
  Age: 57 Year
  Sex: Female
  Weight: 88.44 kg

DRUGS (8)
  1. LYRICA [Suspect]
     Indication: NEURALGIA
     Dosage: 75 MG, 2X/DAY
     Dates: start: 201308, end: 201308
  2. LYRICA [Suspect]
     Indication: FIBROMYALGIA
  3. CALCIUM + VIT D [Concomitant]
     Dosage: UNK, 1 EVERY DAY
     Route: 048
  4. CYMBALTA [Concomitant]
     Dosage: 60 MG, 2X/DAY
     Route: 048
  5. FLEXERIL [Concomitant]
     Dosage: UNK, 10 ORAL TAKING
     Route: 048
  6. METHIMAZOLE [Concomitant]
     Dosage: 300 MG, 1X/DAY
     Route: 048
  7. RANITIDINE [Concomitant]
     Dosage: 300 MG, 1X/DAY
  8. TRAZODONE [Concomitant]
     Dosage: 150 MG, 2 TABLET
     Route: 048

REACTIONS (7)
  - Basedow^s disease [Unknown]
  - Bipolar disorder [Unknown]
  - Umbilical hernia [Unknown]
  - Attention deficit/hyperactivity disorder [Unknown]
  - Pain [Not Recovered/Not Resolved]
  - Depression [Unknown]
  - Anxiety [Unknown]
